FAERS Safety Report 15691602 (Version 1)
Quarter: 2018Q4

REPORT INFORMATION
  Report Type: Spontaneous
  Country: US (occurrence: US)
  Receive Date: 20181205
  Receipt Date: 20181205
  Transmission Date: 20190205
  Serious: Yes (Other)
  Sender: FDA-Public Use
  Company Number: US-BAYER-2018-225368

PATIENT
  Sex: Female

DRUGS (1)
  1. LEVONORGESTREL IUS [UNKNOWN] [Suspect]
     Active Substance: LEVONORGESTREL
     Dosage: UNK
     Route: 015

REACTIONS (3)
  - Genital haemorrhage [None]
  - Medical device pain [None]
  - Device expulsion [Not Recovered/Not Resolved]
